FAERS Safety Report 6245056-9 (Version None)
Quarter: 2009Q2

REPORT INFORMATION
  Report Type: 
  Country: None (occurrence: None)
  Receive Date: 20090625
  Receipt Date: 20090615
  Transmission Date: 20091009
  Serious: Yes (Hospitalization)
  Sender: FDA-Public Use
  Company Number: US-ELI_LILLY_AND_COMPANY-US200903004242

PATIENT
  Sex: Male
  Weight: 90.703 kg

DRUGS (15)
  1. ZYPREXA [Suspect]
     Dosage: 1 D/F, UNK
     Dates: start: 20010101, end: 20030801
  2. ZYPREXA [Suspect]
     Dates: start: 20030901, end: 20060101
  3. DEPAKOTE [Concomitant]
     Dates: start: 20010101, end: 20030801
  4. LORAZEPAM [Concomitant]
     Dates: start: 20010101, end: 20030801
  5. PAXIL [Concomitant]
     Dates: start: 20010101, end: 20030801
  6. EFFEXOR [Concomitant]
     Dates: start: 20010101, end: 20030801
  7. EFFEXOR [Concomitant]
     Dates: start: 20000201, end: 20060101
  8. LITHIUM [Concomitant]
     Dates: start: 20030901, end: 20060101
  9. LITHIUM [Concomitant]
     Dates: start: 20061001, end: 20080801
  10. LITHIUM [Concomitant]
     Dates: start: 20080901
  11. CLONAZEPAM [Concomitant]
     Dates: start: 20030901, end: 20060101
  12. TRILEPTAL [Concomitant]
     Dates: start: 20030901, end: 20060101
  13. NEURONTIN [Concomitant]
     Dates: start: 20061001, end: 20080801
  14. NEURONTIN [Concomitant]
     Dates: start: 20080901
  15. CYMBALTA [Concomitant]
     Dates: start: 20080901

REACTIONS (11)
  - DIABETES MELLITUS [None]
  - DIABETIC COMA [None]
  - DIABETIC KETOACIDOSIS [None]
  - HYPERGLYCAEMIA [None]
  - HYPERTENSION [None]
  - HYPOAESTHESIA [None]
  - IMPAIRED HEALING [None]
  - PANCREATITIS [None]
  - PARAESTHESIA [None]
  - VISION BLURRED [None]
  - WEIGHT INCREASED [None]
